FAERS Safety Report 8791244 (Version 1)
Quarter: 2012Q4

REPORT INFORMATION
  Report Type: Spontaneous
  Country: US (occurrence: None)
  Receive Date: 20120914
  Receipt Date: 20120914
  Transmission Date: 20130627
  Serious: Yes (Hospitalization)
  Sender: FDA-Public Use
  Company Number: None

PATIENT
  Age: 69 Year
  Sex: Male
  Weight: 128.7 kg

DRUGS (15)
  1. METHADONE [Suspect]
     Indication: PAIN
     Route: 048
  2. METHADONE [Suspect]
     Route: 048
  3. ALTACE [Concomitant]
  4. ISSPAN [Concomitant]
  5. GABAPENTIN [Concomitant]
  6. ASA [Concomitant]
  7. MIRALAX [Concomitant]
  8. FISH OIL [Concomitant]
  9. PREVACID [Concomitant]
  10. AFRIN [Concomitant]
  11. PROAIR [Concomitant]
  12. FLOMAX [Concomitant]
  13. TRAMADOL [Concomitant]
  14. FLONASE [Concomitant]
  15. DUONEB [Concomitant]

REACTIONS (2)
  - Encephalopathy [None]
  - Pneumonia [None]
